FAERS Safety Report 9225717 (Version 1)
Quarter: 2013Q1

REPORT INFORMATION
  Report Type: Spontaneous
  Country: US (occurrence: None)
  Receive Date: 20120912
  Receipt Date: 20120912
  Transmission Date: 20140127
  Serious: No
  Sender: FDA-Public Use
  Company Number: 2012SP033706

PATIENT
  Age: 62 Year
  Sex: Male

DRUGS (3)
  1. VICTRELIS [Suspect]
     Indication: HEPATITIS C
     Route: 048
     Dates: start: 20120113
  2. PEG-INTRON [Suspect]
     Indication: HEPATITIS C
     Dates: start: 201110
  3. RIBASPHERE [Suspect]
     Indication: HEPATITIS C
     Dates: start: 201110

REACTIONS (1)
  - Haemoglobin decreased [None]
